FAERS Safety Report 11156882 (Version 1)
Quarter: 2015Q2

REPORT INFORMATION
  Report Type: Spontaneous
  Country: PL (occurrence: PL)
  Receive Date: 20150602
  Receipt Date: 20150602
  Transmission Date: 20150821
  Serious: Yes (Hospitalization)
  Sender: FDA-Public Use
  Company Number: PL-TEVA-566569ISR

PATIENT
  Age: 66 Year
  Sex: Female
  Weight: 60.4 kg

DRUGS (3)
  1. CISPLATINUM [Suspect]
     Active Substance: CISPLATIN
     Indication: ENDOMETRIAL CANCER
     Route: 042
     Dates: start: 20141023, end: 20141023
  2. ADM [Concomitant]
     Indication: ENDOMETRIAL CANCER
     Route: 042
  3. CTX [Concomitant]
     Indication: ENDOMETRIAL CANCER
     Route: 042

REACTIONS (3)
  - Chills [Unknown]
  - Erythema [Unknown]
  - Dyspnoea [Unknown]

NARRATIVE: CASE EVENT DATE: 20141023
